FAERS Safety Report 18139166 (Version 1)
Quarter: 2020Q3

REPORT INFORMATION
  Report Type: Spontaneous
  Country: CN (occurrence: CN)
  Receive Date: 20200812
  Receipt Date: 20200812
  Transmission Date: 20201103
  Serious: Yes (Other)
  Sender: FDA-Public Use
  Company Number: CN-ROCHE-2654413

PATIENT
  Sex: Female

DRUGS (33)
  1. MABTHERA [Suspect]
     Active Substance: RITUXIMAB
     Indication: DIFFUSE LARGE B-CELL LYMPHOMA STAGE IV
     Route: 041
     Dates: start: 20190719, end: 20190802
  2. LENALIDOMIDE [Concomitant]
     Active Substance: LENALIDOMIDE
     Dates: start: 20190816, end: 20190830
  3. VINORELBINE [Concomitant]
     Active Substance: VINORELBINE TARTRATE
     Dates: start: 20190816, end: 20190830
  4. MABTHERA [Suspect]
     Active Substance: RITUXIMAB
     Route: 041
     Dates: start: 20191008, end: 20191109
  5. LENALIDOMIDE [Concomitant]
     Active Substance: LENALIDOMIDE
     Dates: start: 20190907, end: 20190921
  6. CYCLOPHOSPHAMIDE. [Concomitant]
     Active Substance: CYCLOPHOSPHAMIDE
     Dates: start: 20191008, end: 20191109
  7. VINORELBINE [Concomitant]
     Active Substance: VINORELBINE TARTRATE
     Indication: DIFFUSE LARGE B-CELL LYMPHOMA STAGE IV
     Dates: start: 20190719, end: 20190802
  8. VINORELBINE [Concomitant]
     Active Substance: VINORELBINE TARTRATE
     Dates: start: 20191008, end: 20191109
  9. DOXORUBICIN [Concomitant]
     Active Substance: DOXORUBICIN
     Indication: DIFFUSE LARGE B-CELL LYMPHOMA STAGE IV
     Dates: start: 20191008, end: 20191109
  10. CYCLOPHOSPHAMIDE. [Concomitant]
     Active Substance: CYCLOPHOSPHAMIDE
     Dates: start: 20190907, end: 20190921
  11. VINORELBINE [Concomitant]
     Active Substance: VINORELBINE TARTRATE
     Dates: start: 20191217, end: 20191222
  12. PREDNISONE. [Concomitant]
     Active Substance: PREDNISONE
     Dates: start: 20190907, end: 20190921
  13. PREDNISONE. [Concomitant]
     Active Substance: PREDNISONE
     Dates: start: 20191008, end: 20191109
  14. MABTHERA [Suspect]
     Active Substance: RITUXIMAB
     Route: 041
     Dates: start: 20190816, end: 20190830
  15. PREDNISONE. [Concomitant]
     Active Substance: PREDNISONE
     Indication: DIFFUSE LARGE B-CELL LYMPHOMA STAGE IV
     Dates: start: 20190719, end: 20190802
  16. PREDNISONE. [Concomitant]
     Active Substance: PREDNISONE
     Dates: start: 20190816, end: 20190830
  17. PREDNISONE. [Concomitant]
     Active Substance: PREDNISONE
     Dates: start: 20191217, end: 20191222
  18. DECITABINE. [Concomitant]
     Active Substance: DECITABINE
     Indication: DIFFUSE LARGE B-CELL LYMPHOMA STAGE IV
     Dates: start: 20191217, end: 20191222
  19. GEMCITABINE. [Concomitant]
     Active Substance: GEMCITABINE
     Indication: DIFFUSE LARGE B-CELL LYMPHOMA STAGE IV
     Dosage: GDP REGIMEN
     Dates: start: 20200107, end: 20200128
  20. CISPLATIN. [Concomitant]
     Active Substance: CISPLATIN
     Dosage: DICE REGIMEN
     Dates: start: 20200107, end: 20200128
  21. MABTHERA [Suspect]
     Active Substance: RITUXIMAB
     Route: 041
     Dates: start: 20191217, end: 20191222
  22. DOXORUBICIN [Concomitant]
     Active Substance: DOXORUBICIN
     Dates: start: 20191217, end: 20191222
  23. CISPLATIN. [Concomitant]
     Active Substance: CISPLATIN
     Indication: DIFFUSE LARGE B-CELL LYMPHOMA STAGE IV
     Dosage: GDP REGIMEN
     Dates: start: 20200107, end: 20200128
  24. MABTHERA [Suspect]
     Active Substance: RITUXIMAB
     Route: 041
     Dates: start: 20190907, end: 20190921
  25. DEXAMETHASONE. [Concomitant]
     Active Substance: DEXAMETHASONE
     Indication: DIFFUSE LARGE B-CELL LYMPHOMA STAGE IV
     Dosage: GDP REGIMEN
     Dates: start: 20200107, end: 20200128
  26. ETOPOSIDE. [Concomitant]
     Active Substance: ETOPOSIDE
     Indication: DIFFUSE LARGE B-CELL LYMPHOMA STAGE IV
     Dosage: DICE REGIMEN
     Dates: start: 20200107, end: 20200128
  27. CYCLOPHOSPHAMIDE. [Concomitant]
     Active Substance: CYCLOPHOSPHAMIDE
     Dates: start: 20191217, end: 20191222
  28. DEXAMETHASONE. [Concomitant]
     Active Substance: DEXAMETHASONE
     Dosage: DICE REGIMEN
     Dates: start: 20200107, end: 20200128
  29. LENALIDOMIDE [Concomitant]
     Active Substance: LENALIDOMIDE
     Indication: DIFFUSE LARGE B-CELL LYMPHOMA STAGE IV
     Dates: start: 20190719, end: 20190802
  30. CYCLOPHOSPHAMIDE. [Concomitant]
     Active Substance: CYCLOPHOSPHAMIDE
     Indication: DIFFUSE LARGE B-CELL LYMPHOMA STAGE IV
     Dates: start: 20190719, end: 20190802
  31. CYCLOPHOSPHAMIDE. [Concomitant]
     Active Substance: CYCLOPHOSPHAMIDE
     Dates: start: 20190816, end: 20190830
  32. VINORELBINE [Concomitant]
     Active Substance: VINORELBINE TARTRATE
     Dates: start: 20190907, end: 20190921
  33. IFOSFAMIDE. [Concomitant]
     Active Substance: IFOSFAMIDE
     Indication: DIFFUSE LARGE B-CELL LYMPHOMA STAGE IV
     Dosage: DICE REGIMEN
     Dates: start: 20200107, end: 20200128

REACTIONS (2)
  - Interstitial lung disease [Unknown]
  - Thrombosis [Unknown]
